FAERS Safety Report 10438680 (Version 1)
Quarter: 2014Q3

REPORT INFORMATION
  Report Type: Spontaneous
  Country: US (occurrence: US)
  Receive Date: 20140908
  Receipt Date: 20140908
  Transmission Date: 20150326
  Serious: No
  Sender: FDA-Public Use
  Company Number: US-BRISTOL-MYERS SQUIBB COMPANY-19173558

PATIENT
  Sex: Male

DRUGS (1)
  1. ABILIFY [Suspect]
     Active Substance: ARIPIPRAZOLE
     Dosage: CUTTING THE TABLETS IN HALF AND TAKING 15 MG.

REACTIONS (2)
  - Wrong technique in drug usage process [Unknown]
  - Blood glucose abnormal [Unknown]
